FAERS Safety Report 7794772-6 (Version None)
Quarter: 2011Q4

REPORT INFORMATION
  Report Type: 
  Country: None (occurrence: None)
  Receive Date: 20111004
  Receipt Date: 20110928
  Transmission Date: 20120403
  Serious: No
  Sender: FDA-Public Use
  Company Number: US-PFIZER INC-2011231836

PATIENT
  Sex: Female
  Weight: 65.306 kg

DRUGS (3)
  1. SYNTHROID [Concomitant]
     Dosage: UNK
  2. IBUPROFEN (ADVIL) [Suspect]
     Indication: TOOTHACHE
     Dosage: UNK
     Route: 048
     Dates: start: 20110927
  3. PRAVASTATIN [Concomitant]
     Indication: BLOOD CHOLESTEROL ABNORMAL
     Dosage: UNK

REACTIONS (2)
  - DRUG INEFFECTIVE [None]
  - INSOMNIA [None]
